FAERS Safety Report 7244444-1 (Version None)
Quarter: 2011Q1

REPORT INFORMATION
  Report Type: 
  Country: None (occurrence: None)
  Receive Date: 20110125
  Receipt Date: 20110125
  Transmission Date: 20110831
  Serious: Yes (Hospitalization)
  Sender: FDA-Public Use
  Company Number: US-ELI_LILLY_AND_COMPANY-US201007005281

PATIENT
  Sex: Female

DRUGS (1)
  1. BYETTA [Suspect]
     Dates: start: 20080601, end: 20080901

REACTIONS (1)
  - PANCREATITIS [None]
